FAERS Safety Report 15079917 (Version 1)
Quarter: 2018Q2

REPORT INFORMATION
  Report Type: Spontaneous
  Country: US (occurrence: US)
  Receive Date: 20180607
  Receipt Date: 20180607
  Transmission Date: 20180711
  Serious: Yes (Other)
  Sender: FDA-Public Use
  Company Number: None

PATIENT
  Age: 60 Year
  Sex: Female
  Weight: 84.6 kg

DRUGS (10)
  1. IBRANCE [Suspect]
     Active Substance: PALBOCICLIB
     Indication: BREAST CANCER
     Route: 048
     Dates: start: 20180216
  2. ADVAIR HFA [Concomitant]
     Active Substance: FLUTICASONE PROPIONATE\SALMETEROL XINAFOATE
  3. AMLODIPINE [Concomitant]
     Active Substance: AMLODIPINE BESYLATE
  4. HYDROCORTISONE. [Concomitant]
     Active Substance: HYDROCORTISONE
  5. VITAMIN D [Concomitant]
     Active Substance: CHOLECALCIFEROL
  6. LEVOTHYROXINE. [Concomitant]
     Active Substance: LEVOTHYROXINE
  7. ANASTROZOLE. [Concomitant]
     Active Substance: ANASTROZOLE
  8. FLUTICASONE. [Concomitant]
     Active Substance: FLUTICASONE
  9. VITAMIN B12 [Concomitant]
     Active Substance: CYANOCOBALAMIN
  10. OMEGA 3 [Concomitant]
     Active Substance: OMEGA-3 FATTY ACIDS

REACTIONS (1)
  - Disease progression [None]
